FAERS Safety Report 10058094 (Version 2)
Quarter: 2014Q3

REPORT INFORMATION
  Report Type: Spontaneous
  Country: IT (occurrence: None)
  Receive Date: 20140402
  Receipt Date: 20140805
  Transmission Date: 20150326
  Serious: Yes (Life-Threatening, Hospitalization, Disabling)
  Sender: FDA-Public Use
  Company Number: 2014DEPIT00071

PATIENT
  Age: 46 Year
  Sex: Male

DRUGS (1)
  1. DEPOCYT(E) (CYTARABINE) LIPOSOME INJECTABLE SUSPENSION, MG [Suspect]
     Active Substance: CYTARABINE
     Indication: ACUTE LYMPHOCYTIC LEUKAEMIA
     Route: 037

REACTIONS (1)
  - Encephalopathy [None]

NARRATIVE: CASE EVENT DATE: 20120910
